FAERS Safety Report 20747168 (Version 1)
Quarter: 2022Q2

REPORT INFORMATION
  Report Type: Spontaneous
  Country: FR (occurrence: FR)
  Receive Date: 20220425
  Receipt Date: 20220425
  Transmission Date: 20220721
  Serious: Yes (Other)
  Sender: FDA-Public Use
  Company Number: FR-Fresenius Kabi-FK202204734

PATIENT

DRUGS (1)
  1. CASPOFUNGIN [Suspect]
     Active Substance: CASPOFUNGIN
     Indication: Fungal infection
     Dosage: UNKNOWN
     Route: 065

REACTIONS (2)
  - Cutaneous calcification [Not Recovered/Not Resolved]
  - Impaired healing [Not Recovered/Not Resolved]
